FAERS Safety Report 6894157-0 (Version None)
Quarter: 2010Q3

REPORT INFORMATION
  Report Type: 
  Country: None (occurrence: None)
  Receive Date: 20100802
  Receipt Date: 20100721
  Transmission Date: 20110219
  Serious: Yes (Other)
  Sender: FDA-Public Use
  Company Number: AU-JNJFOC-20071203820

PATIENT
  Sex: Female
  Weight: 73.9 kg

DRUGS (87)
  1. GOLIMUMAB [Suspect]
     Indication: RHEUMATOID ARTHRITIS
     Dosage: WEEK 24
     Route: 058
  2. GOLIMUMAB [Suspect]
     Dosage: WEEK 48
     Route: 058
  3. GOLIMUMAB [Suspect]
     Dosage: WEEK 44
     Route: 058
  4. GOLIMUMAB [Suspect]
     Dosage: WEEK 40
     Route: 058
  5. GOLIMUMAB [Suspect]
     Dosage: WEEK 36
     Route: 058
  6. GOLIMUMAB [Suspect]
     Dosage: WEEK 32
     Route: 058
  7. GOLIMUMAB [Suspect]
     Dosage: WEEK 28
     Route: 058
  8. GOLIMUMAB [Suspect]
     Route: 058
  9. GOLIMUMAB [Suspect]
     Dosage: WEEK 20
     Route: 058
  10. GOLIMUMAB [Suspect]
     Dosage: WEEK 16
     Route: 058
  11. GOLIMUMAB [Suspect]
     Dosage: WEEK 12
     Route: 058
  12. GOLIMUMAB [Suspect]
     Dosage: WEEK 8
     Route: 058
  13. GOLIMUMAB [Suspect]
     Dosage: WEEK 4
     Route: 058
  14. GOLIMUMAB [Suspect]
     Dosage: WEEK 0
     Route: 058
  15. METHOTREXATE [Suspect]
     Indication: RHEUMATOID ARTHRITIS
     Dosage: WEEK 51
     Route: 048
  16. METHOTREXATE [Suspect]
     Dosage: WEEK 50
     Route: 048
  17. METHOTREXATE [Suspect]
     Dosage: WEEK 49
     Route: 048
  18. METHOTREXATE [Suspect]
     Dosage: WEEK 48
     Route: 048
  19. METHOTREXATE [Suspect]
     Dosage: WEEK 47
     Route: 048
  20. METHOTREXATE [Suspect]
     Dosage: WEEK 46
     Route: 048
  21. METHOTREXATE [Suspect]
     Dosage: WEEK 45
     Route: 048
  22. METHOTREXATE [Suspect]
     Dosage: WEEK 44
     Route: 048
  23. METHOTREXATE [Suspect]
     Dosage: WEEK 43
     Route: 048
  24. METHOTREXATE [Suspect]
     Dosage: WEEK 42
     Route: 048
  25. METHOTREXATE [Suspect]
     Dosage: WEEK 41
     Route: 048
  26. METHOTREXATE [Suspect]
     Dosage: WEEK 40
     Route: 048
  27. METHOTREXATE [Suspect]
     Dosage: WEEK 39
     Route: 048
  28. METHOTREXATE [Suspect]
     Dosage: WEEK 38
     Route: 048
  29. METHOTREXATE [Suspect]
     Dosage: WEEK 37
     Route: 048
  30. METHOTREXATE [Suspect]
     Dosage: WEEK 36
     Route: 048
  31. METHOTREXATE [Suspect]
     Dosage: WEEK 35
     Route: 048
  32. METHOTREXATE [Suspect]
     Dosage: WEEK 34
     Route: 048
  33. METHOTREXATE [Suspect]
     Dosage: WEEK 33
     Route: 048
  34. METHOTREXATE [Suspect]
     Dosage: WEEK 32
     Route: 048
  35. METHOTREXATE [Suspect]
     Dosage: WEEK 31
     Route: 048
  36. METHOTREXATE [Suspect]
     Dosage: WEEK 30
     Route: 048
  37. METHOTREXATE [Suspect]
     Dosage: WEEK 29
     Route: 048
  38. METHOTREXATE [Suspect]
     Dosage: WEEK 28
     Route: 048
  39. METHOTREXATE [Suspect]
     Dosage: WEEK 27
     Route: 048
  40. METHOTREXATE [Suspect]
     Dosage: WEEK 26
     Route: 048
  41. METHOTREXATE [Suspect]
     Dosage: WEEK 25
     Route: 048
  42. METHOTREXATE [Suspect]
     Dosage: WEEK 24
     Route: 048
  43. METHOTREXATE [Suspect]
     Dosage: WEEK 23
     Route: 048
  44. METHOTREXATE [Suspect]
     Dosage: WEEK 22
     Route: 048
  45. METHOTREXATE [Suspect]
     Dosage: WEEK 21
     Route: 048
  46. METHOTREXATE [Suspect]
     Dosage: WEEK 20
     Route: 048
  47. METHOTREXATE [Suspect]
     Dosage: WEEK 19
     Route: 048
  48. METHOTREXATE [Suspect]
     Dosage: WEEK 17
     Route: 048
  49. METHOTREXATE [Suspect]
     Dosage: WEEK 16
     Route: 048
  50. METHOTREXATE [Suspect]
     Dosage: WEEK 15
     Route: 048
  51. METHOTREXATE [Suspect]
     Dosage: WEEK 14
     Route: 048
  52. METHOTREXATE [Suspect]
     Dosage: WEEK 13
     Route: 048
  53. METHOTREXATE [Suspect]
     Dosage: WEEK 12
     Route: 048
  54. METHOTREXATE [Suspect]
     Dosage: WEEK 11
     Route: 048
  55. METHOTREXATE [Suspect]
     Dosage: WEEK 10
     Route: 048
  56. METHOTREXATE [Suspect]
     Dosage: WEEK 9
     Route: 048
  57. METHOTREXATE [Suspect]
     Dosage: WEEK 8
     Route: 048
  58. METHOTREXATE [Suspect]
     Dosage: WEEK 7
     Route: 048
  59. METHOTREXATE [Suspect]
     Dosage: WEEK 6
     Route: 048
  60. METHOTREXATE [Suspect]
     Dosage: WEEK 5
     Route: 048
  61. METHOTREXATE [Suspect]
     Dosage: WEEK 4
     Route: 048
  62. METHOTREXATE [Suspect]
     Dosage: WEEK 3
     Route: 048
  63. METHOTREXATE [Suspect]
     Dosage: WEEK 2
     Route: 048
  64. METHOTREXATE [Suspect]
     Dosage: WEEK 1
     Route: 048
  65. METHOTREXATE [Suspect]
     Dosage: WEEK 0
     Route: 048
  66. METHOTREXATE [Suspect]
     Route: 048
  67. METHOTREXATE [Suspect]
     Dosage: WEEK 0 -1 WEEK
     Route: 048
  68. METHOTREXATE [Suspect]
     Dosage: WEEK 0 -2 WEEKS
     Route: 048
  69. METHOTREXATE [Suspect]
     Dosage: WEEK 0 -3 WEEKS
     Route: 048
  70. METHOTREXATE [Suspect]
     Dosage: WEEK 0 -4 WEEKS
     Route: 048
  71. FOLIC ACID [Concomitant]
     Route: 048
  72. PARACETAMOL [Concomitant]
     Route: 048
  73. POLY-TEARS [Concomitant]
     Route: 047
  74. VITAMIN B-12 [Concomitant]
     Route: 030
  75. PRILOSEC [Concomitant]
     Route: 048
  76. PREDNISONE [Concomitant]
     Route: 048
  77. PREDNISONE [Concomitant]
     Route: 048
  78. PREDNISONE [Concomitant]
     Route: 048
  79. PREDNISONE [Concomitant]
     Route: 048
  80. PREDNISONE [Concomitant]
     Route: 048
  81. SANDRENA [Concomitant]
     Route: 061
  82. TESTOSTERONE [Concomitant]
     Route: 058
  83. ESTROGEN [Concomitant]
     Route: 058
  84. AMOXICILLIN AND CLAVULANATE POTASSIUM [Concomitant]
     Route: 048
  85. AMOXICILLIN AND CLAVULANATE POTASSIUM [Concomitant]
     Route: 048
  86. AMOXICILLIN AND CLAVULANATE POTASSIUM [Concomitant]
     Route: 048
  87. AMOXICILLIN AND CLAVULANATE POTASSIUM [Concomitant]
     Route: 048

REACTIONS (1)
  - LYMPHOMA [None]
